FAERS Safety Report 11745761 (Version 2)
Quarter: 2016Q3

REPORT INFORMATION
  Report Type: Spontaneous
  Country: CN (occurrence: CN)
  Receive Date: 20151117
  Receipt Date: 20160729
  Transmission Date: 20161109
  Serious: Yes (Other)
  Sender: FDA-Public Use
  Company Number: CN-SUN PHARMACEUTICAL INDUSTRIES LTD-2015R1-106168

PATIENT
  Age: 72 Year
  Sex: Male

DRUGS (5)
  1. 5 FLUOROURACIL [Suspect]
     Active Substance: FLUOROURACIL
     Dosage: CONTINUOUS INFUSION OF 2400 MG/M^2 46 H
     Route: 041
  2. CALCIUM FOLINAT [Suspect]
     Active Substance: LEUCOVORIN CALCIUM
     Indication: METASTASES TO LIVER
     Dosage: 400 MG/M^2 OVER 2 H
     Route: 042
  3. IRINOTECAN [Suspect]
     Active Substance: IRINOTECAN
     Indication: METASTASES TO LIVER
     Dosage: 180 MG/M^2 IV OVER 90 MIN
     Route: 042
  4. BEVACIZUMAB [Suspect]
     Active Substance: BEVACIZUMAB
     Indication: METASTASES TO LIVER
     Dosage: 5 MG/KG IV OVER 90 MIN
     Route: 042
  5. 5 FLUOROURACIL [Suspect]
     Active Substance: FLUOROURACIL
     Indication: METASTASES TO LIVER
     Dosage: IV BOLUS OF 400 MG/M2
     Route: 040

REACTIONS (2)
  - Oesophageal haemorrhage [Recovering/Resolving]
  - Shock [Recovering/Resolving]
